FAERS Safety Report 6161747-2 (Version None)
Quarter: 2009Q2

REPORT INFORMATION
  Report Type: 
  Country: None (occurrence: None)
  Receive Date: 20090421
  Receipt Date: 20090413
  Transmission Date: 20091009
  Serious: Yes (Other)
  Sender: FDA-Public Use
  Company Number: US-JNJFOC-20090403229

PATIENT
  Sex: Female

DRUGS (3)
  1. REMICADE [Suspect]
     Indication: PSORIASIS
     Route: 042
  2. ZESTORETIC [Concomitant]
     Indication: HYPERTENSION
  3. SULINDAC [Concomitant]
     Indication: PSORIASIS

REACTIONS (1)
  - FOOT FRACTURE [None]
